FAERS Safety Report 13067779 (Version 3)
Quarter: 2017Q4

REPORT INFORMATION
  Report Type: Spontaneous
  Country: DE (occurrence: DE)
  Receive Date: 20161228
  Receipt Date: 20171117
  Transmission Date: 20180320
  Serious: Yes (Hospitalization)
  Sender: FDA-Public Use
  Company Number: DE-ACCORD-046801

PATIENT
  Age: 36 Year
  Sex: Male

DRUGS (2)
  1. CISPLATIN. [Suspect]
     Active Substance: CISPLATIN
     Indication: SEMINOMA
     Dosage: 4 CYCLES INCLUDING A TOTAL OF 5 DOSES
     Route: 042
     Dates: start: 20090121, end: 20090514
  2. ETOPOSIDE/ETOPOSIDE PHOSPHATE [Concomitant]
     Indication: SEMINOMA
     Dosage: 4 CYCLES INCLUDING A TOTAL OF 5 DOSES
     Route: 042
     Dates: start: 20090121, end: 20090514

REACTIONS (2)
  - Cerebral infarction [Recovered/Resolved]
  - Cerebral artery occlusion [Recovered/Resolved]

NARRATIVE: CASE EVENT DATE: 20090521
